FAERS Safety Report 24043512 (Version 2)
Quarter: 2024Q3

REPORT INFORMATION
  Report Type: Spontaneous
  Country: US (occurrence: US)
  Receive Date: 20240703
  Receipt Date: 20240815
  Transmission Date: 20241017
  Serious: Yes (Hospitalization, Disabling, Other)
  Sender: GLAXOSMITHKLINE
  Company Number: US-GSKCCFUS-Case-02041630_AE-113141

PATIENT

DRUGS (30)
  1. NUCALA [Suspect]
     Active Substance: MEPOLIZUMAB
     Indication: Asthma
     Dosage: UNK
     Dates: start: 20211122
  2. ROXICODONE [Concomitant]
     Active Substance: OXYCODONE HYDROCHLORIDE
     Indication: Pain
     Dosage: 5 MG, QID, AS NEEDED
     Route: 048
  3. VALIUM [Concomitant]
     Active Substance: DIAZEPAM
     Indication: Product used for unknown indication
     Dosage: 2 MG, BID
     Route: 048
  4. PROTONIX [Concomitant]
     Active Substance: PANTOPRAZOLE SODIUM
     Indication: Product used for unknown indication
     Dosage: 40 MG, QD
     Route: 048
  5. MIRALAX [Concomitant]
     Active Substance: POLYETHYLENE GLYCOL 3350
     Indication: Product used for unknown indication
     Dosage: 17 G, BID, STIR AND DISSOLVE 17 G (1 CAPFUL) OF POWDER IN ANY 4-8 OUNCES OF BEVERAGE THEN DRINK
     Route: 048
  6. KLOR-CON M20 [Concomitant]
     Active Substance: POTASSIUM CHLORIDE
     Indication: Gastrointestinal disorder therapy
     Dosage: 1 DF, QD WITH BREAKFAST
     Route: 048
  7. ZYPREXA [Concomitant]
     Active Substance: OLANZAPINE
     Indication: Agitation
     Dosage: 2.5 MG, BID, 1 TAB AS NEEDED
  8. ZYPREXA [Concomitant]
     Active Substance: OLANZAPINE
     Indication: Anxiety
  9. MELATONIN [Concomitant]
     Active Substance: MELATONIN
     Indication: Insomnia
     Dosage: 3 MG, 1 TABLET NIGHTLY AS NEEDED
     Route: 048
  10. LEXAPRO [Concomitant]
     Active Substance: ESCITALOPRAM OXALATE
     Indication: Product used for unknown indication
     Dosage: 3 DF, QD, 5MG
     Route: 048
  11. SENOKOT-S [Concomitant]
     Active Substance: DOCUSATE SODIUM\SENNOSIDES
     Indication: Diarrhoea
     Dosage: 2 DF, BID, 50-8.6 MG
     Route: 048
  12. DEPAKOTE [Concomitant]
     Active Substance: DIVALPROEX SODIUM
     Indication: Product used for unknown indication
     Dosage: 2 DF, TID
     Route: 048
  13. VOLTAREN [Concomitant]
     Active Substance: DICLOFENAC SODIUM
     Indication: Product used for unknown indication
     Dosage: 4 G, QID
     Route: 061
  14. LIORESAL [Concomitant]
     Active Substance: BACLOFEN
     Indication: Product used for unknown indication
     Dosage: 1 DF, QD, NIGHTLY
     Route: 048
  15. TYLENOL [Concomitant]
     Active Substance: ACETAMINOPHEN
     Indication: Pain
     Dosage: 2 DF, QID, AS NEEDED
     Route: 048
  16. VERAPAMIL HCL [Concomitant]
     Active Substance: VERAPAMIL HYDROCHLORIDE
     Indication: Product used for unknown indication
     Dosage: 20 MG, TID, ONE-HALF TABLET
     Route: 048
  17. ZANAFLEX [Concomitant]
     Active Substance: TIZANIDINE HYDROCHLORIDE
     Indication: Product used for unknown indication
     Dosage: 1 DF, TID
     Route: 048
  18. LYRICA [Concomitant]
     Active Substance: PREGABALIN
     Indication: Product used for unknown indication
     Dosage: 100 MG, TID
     Route: 048
  19. NARCAN [Concomitant]
     Active Substance: NALOXONE HYDROCHLORIDE
     Indication: Product used for unknown indication
     Dosage: UNK, 4 MG/0.1ML, 1 SPRAY EACH NOSTRIL
  20. ADVAIR HFA [Concomitant]
     Active Substance: FLUTICASONE PROPIONATE\SALMETEROL XINAFOATE
     Indication: Product used for unknown indication
     Dosage: 2 PUFF(S), BID, 230-21 MCG/ACT
     Route: 055
  21. SINGULAIR [Concomitant]
     Active Substance: MONTELUKAST SODIUM
     Indication: Product used for unknown indication
     Dosage: 2 DF, QD, NIGHTLY
     Route: 048
  22. ALBUTEROL SULFATE [Concomitant]
     Active Substance: ALBUTEROL SULFATE
     Indication: Dyspnoea
     Dosage: 2 PUFF(S), QID AS NEEDED
  23. ALBUTEROL SULFATE [Concomitant]
     Active Substance: ALBUTEROL SULFATE
     Indication: Wheezing
  24. LEVOTHYROXINE SODIUM [Concomitant]
     Active Substance: LEVOTHYROXINE SODIUM
     Indication: Product used for unknown indication
     Dosage: 1 DF, QD
     Route: 048
  25. CYANOCOBALAMIN [Concomitant]
     Active Substance: CYANOCOBALAMIN
     Indication: Product used for unknown indication
     Dosage: 1 DF, QD
     Route: 048
  26. LAMICTAL [Concomitant]
     Active Substance: LAMOTRIGINE
     Indication: Product used for unknown indication
     Dosage: 1 DF, QD
     Route: 048
  27. DRISDOL [Concomitant]
     Active Substance: ERGOCALCIFEROL
     Indication: Product used for unknown indication
     Dosage: 1 DF, WE
     Route: 048
  28. FOLATE SODIUM [Concomitant]
     Active Substance: FOLATE SODIUM
     Indication: Product used for unknown indication
     Dosage: 1 DF, QD
     Route: 048
  29. ASCORBIC ACID\ZINC [Concomitant]
     Active Substance: ASCORBIC ACID\ZINC
     Indication: Product used for unknown indication
     Dosage: 1 DF, QD
  30. CLARITIN [Concomitant]
     Active Substance: LORATADINE
     Indication: Product used for unknown indication
     Dosage: 10 MG, QD, EVERY MORNING
     Route: 048

REACTIONS (44)
  - Basal ganglia stroke [Not Recovered/Not Resolved]
  - Depressed level of consciousness [Unknown]
  - Haemorrhagic stroke [Unknown]
  - Haemorrhage intracranial [Unknown]
  - Non-alcoholic steatohepatitis [Unknown]
  - Pulmonary hypertension [Unknown]
  - Immunosuppression [Unknown]
  - Major depression [Unknown]
  - Hypothyroidism [Unknown]
  - Coeliac disease [Unknown]
  - Impaired gastric emptying [Unknown]
  - Cognitive disorder [Unknown]
  - Confusional state [Unknown]
  - Peripheral sensorimotor neuropathy [Unknown]
  - Aphasia [Unknown]
  - Dysarthria [Unknown]
  - Dysphagia [Unknown]
  - Ataxia [Unknown]
  - Migraine [Unknown]
  - Intervertebral disc disorder [Unknown]
  - Obstructive sleep apnoea syndrome [Unknown]
  - Hypertriglyceridaemia [Unknown]
  - Neck pain [Unknown]
  - Conjunctivitis allergic [Unknown]
  - Anxiety [Unknown]
  - Muscle spasms [Unknown]
  - Gastrooesophageal reflux disease [Unknown]
  - Bile acid malabsorption [Unknown]
  - Diverticulum intestinal [Unknown]
  - Psychotic disorder [Unknown]
  - Orthostatic hypotension [Unknown]
  - Tension headache [Unknown]
  - Type V hyperlipidaemia [Unknown]
  - Pulmonary eosinophilia [Unknown]
  - Back pain [Unknown]
  - Haemorrhoids [Unknown]
  - Hypertonic bladder [Unknown]
  - Presyncope [Unknown]
  - Bursitis [Unknown]
  - Chronic sinusitis [Unknown]
  - Osteoarthritis [Unknown]
  - Carpal tunnel syndrome [Unknown]
  - Abdominal pain lower [Unknown]
  - Glucose tolerance impaired [Unknown]

NARRATIVE: CASE EVENT DATE: 20240607
